FAERS Safety Report 13677126 (Version 2)
Quarter: 2017Q3

REPORT INFORMATION
  Report Type: Report from Study
  Country: JP (occurrence: JP)
  Receive Date: 20170622
  Receipt Date: 20170921
  Transmission Date: 20171127
  Serious: Yes (Hospitalization, Other)
  Sender: FDA-Public Use
  Company Number: JP-AMGEN-JPNNI2017094970

PATIENT
  Age: 79 Year
  Sex: Female
  Weight: 35 kg

DRUGS (36)
  1. PEGFILGRASTIM [Suspect]
     Active Substance: PEGFILGRASTIM
     Dosage: 3.6 MG, UNK
     Route: 058
     Dates: start: 20170502, end: 20170502
  2. ENDOXAN                            /00021101/ [Suspect]
     Active Substance: CYCLOPHOSPHAMIDE
     Dosage: 750 MG, UNK
     Route: 041
     Dates: start: 20170321, end: 20170321
  3. ENDOXAN                            /00021101/ [Suspect]
     Active Substance: CYCLOPHOSPHAMIDE
     Dosage: 750 MG, UNK
     Route: 041
     Dates: start: 20170501, end: 20170501
  4. FILGRASTIM [Concomitant]
     Active Substance: FILGRASTIM
     Dosage: 75 MUG, UNK
     Route: 065
     Dates: start: 20170524, end: 20170601
  5. SODIUM RABEPRAZOLE [Concomitant]
     Active Substance: RABEPRAZOLE SODIUM
     Dosage: UNK
     Route: 048
  6. PEGFILGRASTIM [Suspect]
     Active Substance: PEGFILGRASTIM
     Dosage: 3.6 MG, UNK
     Route: 058
     Dates: start: 20170324, end: 20170324
  7. PINORUBIN                          /00963101/ [Suspect]
     Active Substance: PIRARUBICIN
     Indication: NON-HODGKIN^S LYMPHOMA
     Dosage: 50 MG, UNK
     Route: 042
     Dates: start: 20170228, end: 20170228
  8. PREDONINE [Suspect]
     Active Substance: PREDNISOLONE
     Dosage: 50 MG, UNK
     Route: 048
     Dates: start: 20170501, end: 20170505
  9. DAIPHEN [Concomitant]
     Active Substance: SULFAMETHOXAZOLE\TRIMETHOPRIM
     Dosage: UNK
     Route: 048
  10. PANTETHINE [Concomitant]
     Active Substance: PANTETHINE
     Indication: CONSTIPATION
     Dosage: UNK
     Route: 048
  11. ONCOVIN [Suspect]
     Active Substance: VINCRISTINE SULFATE
     Dosage: 1.4 MG, UNK
     Route: 041
     Dates: start: 20170501, end: 20170501
  12. PINORUBIN                          /00963101/ [Suspect]
     Active Substance: PIRARUBICIN
     Dosage: 50 MG, UNK
     Route: 042
     Dates: start: 20170321, end: 20170321
  13. PINORUBIN                          /00963101/ [Suspect]
     Active Substance: PIRARUBICIN
     Dosage: 50 MG, UNK
     Route: 042
     Dates: start: 20170501, end: 20170501
  14. SPIRONOLACTONE. [Concomitant]
     Active Substance: SPIRONOLACTONE
     Indication: CARDIAC FAILURE CHRONIC
     Dosage: UNK
     Route: 048
  15. SENNARIDE [Concomitant]
     Active Substance: SENNOSIDES A AND B
     Indication: CONSTIPATION
     Dosage: UNK
     Route: 048
  16. RITUXAN [Suspect]
     Active Substance: RITUXIMAB
     Dosage: 500 MG, UNK
     Route: 041
     Dates: start: 20170501, end: 20170501
  17. PINORUBIN                          /00963101/ [Suspect]
     Active Substance: PIRARUBICIN
     Dosage: 50 MG, UNK
     Route: 042
     Dates: start: 20170411, end: 20170411
  18. PREDONINE [Suspect]
     Active Substance: PREDNISOLONE
     Indication: NON-HODGKIN^S LYMPHOMA
     Dosage: 50 MG, UNK
     Route: 048
     Dates: start: 20170228, end: 20170304
  19. FILGRASTIM [Concomitant]
     Active Substance: FILGRASTIM
     Dosage: 75 MUG, UNK
     Route: 065
     Dates: start: 20170522, end: 20170522
  20. FUROSEMIDE. [Concomitant]
     Active Substance: FUROSEMIDE
     Indication: CARDIAC FAILURE CHRONIC
     Dosage: UNK
     Route: 048
  21. RITUXAN [Suspect]
     Active Substance: RITUXIMAB
     Dosage: 500 MG, UNK
     Route: 041
     Dates: start: 20170321, end: 20170321
  22. ENDOXAN                            /00021101/ [Suspect]
     Active Substance: CYCLOPHOSPHAMIDE
     Indication: NON-HODGKIN^S LYMPHOMA
     Dosage: 750 MG, UNK
     Route: 041
     Dates: start: 20170228, end: 20170228
  23. DIART [Concomitant]
     Active Substance: AZOSEMIDE
     Indication: CARDIAC FAILURE CHRONIC
     Dosage: UNK
     Route: 048
  24. MAGNESIUM OXIDE. [Concomitant]
     Active Substance: MAGNESIUM OXIDE
     Indication: CONSTIPATION
     Dosage: UNK
     Route: 048
  25. RITUXAN [Suspect]
     Active Substance: RITUXIMAB
     Dosage: 500 MG, UNK
     Route: 041
     Dates: start: 20170411, end: 20170411
  26. ONCOVIN [Suspect]
     Active Substance: VINCRISTINE SULFATE
     Dosage: 1.4 MG, UNK
     Route: 041
     Dates: start: 20170321, end: 20170321
  27. ENDOXAN                            /00021101/ [Suspect]
     Active Substance: CYCLOPHOSPHAMIDE
     Dosage: 750 MG, UNK
     Route: 041
     Dates: start: 20170411, end: 20170411
  28. FILGRASTIM [Concomitant]
     Active Substance: FILGRASTIM
     Dosage: 75 MUG, UNK
     Route: 065
     Dates: start: 20170519, end: 20170520
  29. SODIUM PICOSULFATE [Concomitant]
     Active Substance: SODIUM PICOSULFATE
     Indication: CONSTIPATION
     Dosage: UNK
     Route: 048
  30. PEGFILGRASTIM [Suspect]
     Active Substance: PEGFILGRASTIM
     Dosage: 3.6 MG, UNK
     Route: 058
     Dates: start: 20170414, end: 20170414
  31. PREDONINE [Suspect]
     Active Substance: PREDNISOLONE
     Dosage: 50 MG, UNK
     Route: 048
     Dates: start: 20170411, end: 20170415
  32. PEGFILGRASTIM [Suspect]
     Active Substance: PEGFILGRASTIM
     Indication: COLONY STIMULATING FACTOR PROPHYLAXIS
     Dosage: 3.6 MG, UNK
     Route: 058
     Dates: start: 20170303, end: 20170303
  33. RITUXAN [Suspect]
     Active Substance: RITUXIMAB
     Indication: NON-HODGKIN^S LYMPHOMA
     Dosage: 500 MG, UNK
     Route: 041
     Dates: start: 20170228, end: 20170228
  34. ONCOVIN [Suspect]
     Active Substance: VINCRISTINE SULFATE
     Indication: NON-HODGKIN^S LYMPHOMA
     Dosage: 1.4 MG, UNK
     Route: 041
     Dates: start: 20170228, end: 20170228
  35. ONCOVIN [Suspect]
     Active Substance: VINCRISTINE SULFATE
     Dosage: 1.4 MG, UNK
     Route: 041
     Dates: start: 20170411, end: 20170411
  36. PREDONINE [Suspect]
     Active Substance: PREDNISOLONE
     Dosage: 50 MG, UNK
     Route: 048
     Dates: start: 20170321, end: 20170325

REACTIONS (2)
  - Febrile neutropenia [Recovered/Resolved]
  - Colony stimulating factor therapy [Unknown]

NARRATIVE: CASE EVENT DATE: 20170514
